FAERS Safety Report 22520154 (Version 1)
Quarter: 2023Q2

REPORT INFORMATION
  Report Type: Spontaneous
  Country: CA (occurrence: CA)
  Receive Date: 20230605
  Receipt Date: 20230605
  Transmission Date: 20230722
  Serious: Yes (Hospitalization)
  Sender: FDA-Public Use
  Company Number: CA-PFIZER INC-202300208027

PATIENT
  Age: 87 Year
  Sex: Female
  Weight: 52 kg

DRUGS (1)
  1. ADALIMUMAB [Suspect]
     Active Substance: ADALIMUMAB
     Indication: Rheumatoid arthritis
     Dosage: 40 MG
     Route: 065

REACTIONS (4)
  - COVID-19 [Unknown]
  - Diarrhoea [Unknown]
  - Infection [Unknown]
  - Viral infection [Unknown]
